FAERS Safety Report 8361758-2 (Version None)
Quarter: 2012Q2

REPORT INFORMATION
  Report Type: 
  Country: None (occurrence: None)
  Receive Date: 20120515
  Receipt Date: 20120514
  Transmission Date: 20120825
  Serious: Yes (Hospitalization)
  Sender: FDA-Public Use
  Company Number: US-GLAXOSMITHKLINE-A0933691A

PATIENT
  Sex: Male

DRUGS (1)
  1. AVANDIA [Suspect]
     Indication: DIABETES MELLITUS
     Route: 048

REACTIONS (5)
  - TOE AMPUTATION [None]
  - VISUAL IMPAIRMENT [None]
  - OEDEMA PERIPHERAL [None]
  - THROMBOSIS [None]
  - DYSPHAGIA [None]
